FAERS Safety Report 6416313-8 (Version None)
Quarter: 2009Q4

REPORT INFORMATION
  Report Type: 
  Country: None (occurrence: None)
  Receive Date: 20091023
  Receipt Date: 20091013
  Transmission Date: 20100525
  Serious: Yes (Hospitalization, Other)
  Sender: FDA-Public Use
  Company Number: TPA2009A01577

PATIENT
  Age: 81 Year
  Sex: Male
  Weight: 72.1219 kg

DRUGS (6)
  1. KAPIDEX [Suspect]
     Indication: GASTRIC ULCER
     Dosage: 60 MG, 1 IN 1 D, PER ORAL
     Route: 048
     Dates: start: 20090414, end: 20090501
  2. KAPIDEX [Suspect]
     Indication: GASTROOESOPHAGEAL REFLUX DISEASE
     Dosage: 60 MG, 1 IN 1 D, PER ORAL
     Route: 048
     Dates: start: 20090414, end: 20090501
  3. KAPIDEX [Suspect]
     Indication: HELICOBACTER INFECTION
     Dosage: 60 MG, 1 IN 1 D, PER ORAL
     Route: 048
     Dates: start: 20090414, end: 20090501
  4. KAPIDEX [Suspect]
     Indication: HIATUS HERNIA
     Dosage: 60 MG, 1 IN 1 D, PER ORAL
     Route: 048
     Dates: start: 20090414, end: 20090501
  5. COUMADIN [Suspect]
     Indication: DRUG USE FOR UNKNOWN INDICATION
  6. DIGOXIN [Suspect]

REACTIONS (3)
  - GASTROINTESTINAL HAEMORRHAGE [None]
  - INTERNATIONAL NORMALISED RATIO INCREASED [None]
  - RECTAL HAEMORRHAGE [None]
